FAERS Safety Report 9110081 (Version 3)
Quarter: 2013Q1

REPORT INFORMATION
  Report Type: Spontaneous
  Country: DE (occurrence: DE)
  Receive Date: 20130222
  Receipt Date: 20130314
  Transmission Date: 20140127
  Serious: Yes (Hospitalization, Disabling, Other)
  Sender: FDA-Public Use
  Company Number: DE-JNJFOC-20130207820

PATIENT
  Age: 72 Year
  Sex: Male
  Weight: 86 kg

DRUGS (17)
  1. XARELTO [Suspect]
     Indication: CEREBROVASCULAR ACCIDENT PROPHYLAXIS
     Route: 048
     Dates: start: 20120612, end: 20121012
  2. XARELTO [Suspect]
     Indication: ATRIAL FIBRILLATION
     Route: 048
     Dates: start: 20120612, end: 20121012
  3. BLOPRESS PLUS [Concomitant]
     Route: 065
  4. BLOPRESS PLUS [Concomitant]
     Dosage: 1-0-0
     Route: 065
  5. SIMVAHEXAL [Concomitant]
     Route: 065
  6. PANTOPRAZOLE [Concomitant]
     Route: 065
  7. AMLODIPINE [Concomitant]
     Route: 065
  8. AMLODIPINE [Concomitant]
     Route: 065
  9. BISOPROLOL [Concomitant]
     Route: 065
  10. MARCUMAR [Concomitant]
     Dosage: INTAKE ACCORDING TO QUICK^S VALUE
     Route: 065
  11. NOVAMINSULFON [Concomitant]
     Dosage: GGT, PRN
     Route: 065
  12. MADOPAR [Concomitant]
     Route: 065
  13. VENLAFAXINE [Concomitant]
     Dosage: IN MORNING
     Route: 065
  14. PANTOZOL [Concomitant]
     Route: 065
  15. CONCOR [Concomitant]
     Route: 065
  16. HYDROCHLOROTHIAZIDE [Concomitant]
     Route: 065
  17. DOMPERIDONE [Concomitant]
     Route: 065

REACTIONS (4)
  - Hemiparesis [Recovering/Resolving]
  - Basal ganglia haemorrhage [Recovering/Resolving]
  - Dysarthria [Recovered/Resolved]
  - Convulsion [Recovered/Resolved]
